FAERS Safety Report 4519207-8 (Version None)
Quarter: 2004Q4

REPORT INFORMATION
  Report Type: 
  Country: None (occurrence: None)
  Receive Date: 20041201
  Receipt Date: 20041115
  Transmission Date: 20050328
  Serious: Yes (Hospitalization)
  Sender: FDA-Public Use
  Company Number: 2004CG02272

PATIENT
  Age: 74 Year
  Sex: Female

DRUGS (3)
  1. ATACAND [Suspect]
     Dosage: 1 DF QD PO
     Route: 048
     Dates: end: 20040721
  2. FUROSEMIDE [Suspect]
     Dosage: 40 MG QD PO
     Route: 048
     Dates: end: 20040721
  3. GLUCOPHAGE [Suspect]
     Dosage: 850 MG TID PO
     Route: 048
     Dates: end: 20040721

REACTIONS (9)
  - ACIDOSIS [None]
  - BLOOD BICARBONATE DECREASED [None]
  - BLOOD GLUCOSE DECREASED [None]
  - DEHYDRATION [None]
  - DIARRHOEA [None]
  - HYPOGLYCAEMIA [None]
  - MALAISE [None]
  - POLYURIA [None]
  - RENAL FAILURE ACUTE [None]
